FAERS Safety Report 17943133 (Version 1)
Quarter: 2020Q2

REPORT INFORMATION
  Report Type: Spontaneous
  Country: IE (occurrence: IE)
  Receive Date: 20200625
  Receipt Date: 20200625
  Transmission Date: 20200714
  Serious: Yes (Hospitalization, Other)
  Sender: FDA-Public Use
  Company Number: IE-MYLANLABS-2020M1054832

PATIENT
  Age: 58 Year
  Sex: Female
  Weight: 50 kg

DRUGS (4)
  1. CLOZARIL [Suspect]
     Active Substance: CLOZAPINE
     Dosage: 14 TABLETS, EACH TABLET 200 MG
     Route: 048
     Dates: start: 20200603, end: 20200603
  2. CLOZARIL [Suspect]
     Active Substance: CLOZAPINE
     Indication: SCHIZOPHRENIA
     Dosage: 200 MILLIGRAM, BD
     Route: 048
     Dates: start: 20200420, end: 20200603
  3. KWELLS [Concomitant]
     Active Substance: SCOPOLAMINE HYDROBROMIDE
     Indication: SALIVARY HYPERSECRETION
     Dosage: 300 MICROGRAM, BD
     Route: 048
     Dates: start: 20200420, end: 20200603
  4. LORAZEPAM. [Concomitant]
     Active Substance: LORAZEPAM
     Indication: ANXIETY
     Dosage: 1 MILLIGRAM, BD
     Route: 048
     Dates: start: 20200420, end: 20200605

REACTIONS (6)
  - Overdose [Recovered/Resolved]
  - Neutropenia [Not Recovered/Not Resolved]
  - Body temperature increased [Recovered/Resolved]
  - C-reactive protein decreased [Unknown]
  - Blood pressure systolic decreased [Not Recovered/Not Resolved]
  - White blood cell disorder [Recovered/Resolved]

NARRATIVE: CASE EVENT DATE: 20200603
